FAERS Safety Report 7241462-4 (Version None)
Quarter: 2011Q1

REPORT INFORMATION
  Report Type: 
  Country: None (occurrence: None)
  Receive Date: 20110111
  Receipt Date: 20101228
  Transmission Date: 20110831
  Serious: Yes (Death, Hospitalization)
  Sender: FDA-Public Use
  Company Number: THYM-1001235

PATIENT
  Age: 52 Year
  Sex: Male
  Weight: 53 kg

DRUGS (18)
  1. MECOBALAMIN (MECOBALAMIN) [Concomitant]
  2. ETOPOSIDE [Concomitant]
  3. THYMOGLOBULIN [Suspect]
     Indication: BONE MARROW CONDITIONING REGIMEN
     Dosage: 50 MG, QD, INTRAVENOUS
     Route: 042
     Dates: start: 20090219, end: 20090222
  4. ITRACONAZOLE [Concomitant]
  5. CYTARABINE [Concomitant]
  6. LANSOPRAZOLE [Concomitant]
  7. PLATELETS, CONCENTRATED (PLATELETS, CONCENTRATED) [Concomitant]
  8. MELPHALAN HYDROCHLORIDE [Concomitant]
  9. REBAMIPIDE (REBAMIPIDE) [Concomitant]
  10. VORICONAZOLE [Concomitant]
  11. ACYCLOVIR [Concomitant]
  12. MYCOPHENOLATE MOFETIL [Concomitant]
  13. SULFAMETTHOXAZOLE AND TRIMETHOPRIM [Concomitant]
  14. PREDNISOLONE [Concomitant]
  15. FAMOTIDINE [Concomitant]
  16. RED BLOOD CELLS, CONCENTRATED (RED BLOOD CELLS, CONCENTRATED) [Concomitant]
  17. FLUDARA [Concomitant]
  18. VALACICLOVIR HYDROCHLORIDE (VALACICLOVIR HYDROCHLORIDE) [Concomitant]

REACTIONS (7)
  - MUSCULAR WEAKNESS [None]
  - STEM CELL TRANSPLANT [None]
  - DIFFUSE LARGE B-CELL LYMPHOMA [None]
  - MEMORY IMPAIRMENT [None]
  - NEOPLASM MALIGNANT [None]
  - METASTASES TO CENTRAL NERVOUS SYSTEM [None]
  - DISORIENTATION [None]
